FAERS Safety Report 6808520-7 (Version None)
Quarter: 2010Q2

REPORT INFORMATION
  Report Type: 
  Country: None (occurrence: None)
  Receive Date: 20100629
  Receipt Date: 20090706
  Transmission Date: 20101027
  Serious: Yes (Other)
  Sender: FDA-Public Use
  Company Number: US-PFIZER INC-2009237228

PATIENT
  Age: 51 Year
  Sex: Male
  Weight: 81.6 kg

DRUGS (2)
  1. VIAGRA [Suspect]
     Indication: ERECTILE DYSFUNCTION
     Dosage: 50 MG, UNK
     Route: 048
     Dates: start: 20090301
  2. ATORVASTATIN [Concomitant]
     Dosage: UNK
     Route: 048

REACTIONS (1)
  - DEPRESSION [None]
